FAERS Safety Report 5859022-6 (Version None)
Quarter: 2008Q3

REPORT INFORMATION
  Report Type: 
  Country: None (occurrence: None)
  Receive Date: 20080827
  Receipt Date: 20080814
  Transmission Date: 20090109
  Serious: Yes (Other)
  Sender: FDA-Public Use
  Company Number: GB-RANBAXY-2008RR-17434

PATIENT

DRUGS (3)
  1. ACICLO BASICS 200 MG [Suspect]
     Indication: ORAL HERPES
     Dosage: 400 MG, BID
     Route: 065
  2. NORGESTIMATE AND ETHINYL ESTRADIOL [Suspect]
     Indication: CONTRACEPTION
     Dosage: UNK
     Route: 048
     Dates: start: 20050217
  3. ACYCLOVIR [Concomitant]
     Indication: BACTERIAL INFECTION
     Route: 065

REACTIONS (3)
  - BACTERIAL INFECTION [None]
  - DRUG INTERACTION [None]
  - METRORRHAGIA [None]
